FAERS Safety Report 9146830 (Version 1)
Quarter: 2013Q1

REPORT INFORMATION
  Report Type: Spontaneous
  Country: US (occurrence: US)
  Receive Date: 20130307
  Receipt Date: 20130307
  Transmission Date: 20140127
  Serious: Yes (Life-Threatening, Other)
  Sender: FDA-Public Use
  Company Number: US-BRISTOL-MYERS SQUIBB COMPANY-17327586

PATIENT
  Age: 60 Year
  Sex: Female

DRUGS (15)
  1. ORENCIA [Suspect]
     Indication: RHEUMATOID ARTHRITIS
     Route: 042
     Dates: start: 20100402, end: 20120207
  2. AVAPRO [Concomitant]
  3. ASPIRIN [Concomitant]
  4. METFORMIN [Concomitant]
     Dosage: 1/2 TAB 2/DAY
  5. GLUCOTROL [Concomitant]
  6. POTASSIUM CHLORIDE [Concomitant]
  7. LASIX [Concomitant]
  8. NIFEDIPINE [Concomitant]
  9. TOPROL XL [Concomitant]
  10. CALCIUM + VITAMIN D [Concomitant]
  11. FOLIC ACID [Concomitant]
  12. MULTIVITAMIN [Concomitant]
  13. TUMS [Concomitant]
  14. VENOFER [Concomitant]
     Dosage: 1DF: 20MG/ML
  15. METHOTREXATE [Concomitant]

REACTIONS (2)
  - Diffuse large B-cell lymphoma stage IV [Not Recovered/Not Resolved]
  - Renal failure acute [Unknown]
